FAERS Safety Report 19614871 (Version 1)
Quarter: 2021Q3

REPORT INFORMATION
  Report Type: Spontaneous
  Country: DE (occurrence: DE)
  Receive Date: 20210727
  Receipt Date: 20210727
  Transmission Date: 20211014
  Serious: Yes (Hospitalization, Other)
  Sender: FDA-Public Use
  Company Number: DE-MYLANLABS-2021M1044924

PATIENT
  Sex: Female
  Weight: 100 kg

DRUGS (14)
  1. RANITIDIN 1 A PHARMA [Suspect]
     Active Substance: RANITIDINE HYDROCHLORIDE
     Dosage: 300 MG, UNKNOWN
     Route: 065
     Dates: start: 201806
  2. NOVALGIN (METAMIZOLE SODIUM) [Suspect]
     Active Substance: METAMIZOLE SODIUM
     Indication: PAIN
     Dosage: UNK
     Route: 065
     Dates: start: 200607
  3. RANITIDIN 1 A PHARMA [Suspect]
     Active Substance: RANITIDINE HYDROCHLORIDE
     Indication: HIATUS HERNIA
     Dosage: 300 MG, UNKNOWN
     Route: 065
     Dates: end: 202001
  4. RANITIDIN 1 A PHARMA [Suspect]
     Active Substance: RANITIDINE HYDROCHLORIDE
     Dosage: 300 MG, UNKNOWN
     Route: 065
     Dates: start: 201510, end: 201703
  5. DULOXETINE MYLAN [Suspect]
     Active Substance: DULOXETINE
     Indication: PAIN
     Dosage: 60 MG, QD
     Route: 065
     Dates: end: 201010
  6. DULOXETINE MYLAN [Suspect]
     Active Substance: DULOXETINE
     Indication: FIBROMYALGIA
  7. NALOXONE HYDROCHLORIDE/TILIDINE HYDROCHLORIDE [Suspect]
     Active Substance: NALOXONE HYDROCHLORIDE\TILIDINE HYDROCHLORIDE
     Indication: ARTHRALGIA
     Dosage: 4 MG, BID(MORNING AND EVENING)
     Route: 065
  8. MIRTAZAPINE. [Suspect]
     Active Substance: MIRTAZAPINE
     Indication: PRODUCT USED FOR UNKNOWN INDICATION
     Dosage: 15 MG, QD(IN THE EVENING)
     Route: 065
  9. RANITIDIN 1 A PHARMA [Suspect]
     Active Substance: RANITIDINE HYDROCHLORIDE
     Indication: CHRONIC GASTRITIS
     Dosage: 300 MG, QD(IN THE MORNING)
     Route: 065
     Dates: start: 2015
  10. KATADOLON                          /00890102/ [Suspect]
     Active Substance: FLUPIRTINE
     Indication: PRODUCT USED FOR UNKNOWN INDICATION
     Dosage: UNK UNK, QD
     Route: 065
  11. RANITIDIN 1 A PHARMA [Suspect]
     Active Substance: RANITIDINE HYDROCHLORIDE
     Indication: GASTROOESOPHAGEAL REFLUX DISEASE
     Dosage: 300 MG, UNKNOWN
     Route: 065
     Dates: start: 201710, end: 201802
  12. RANITIDIN 1 A PHARMA [Suspect]
     Active Substance: RANITIDINE HYDROCHLORIDE
     Dosage: 300 MG, TID(IN PART NOV 2015)
     Route: 065
  13. DOXEPIN [Suspect]
     Active Substance: DOXEPIN
     Indication: PRODUCT USED FOR UNKNOWN INDICATION
     Dosage: UNK
     Route: 065
  14. RANITIDIN 1 A PHARMA [Suspect]
     Active Substance: RANITIDINE HYDROCHLORIDE
     Dosage: 300 MG, UNKNOWN
     Route: 065
     Dates: start: 1999

REACTIONS (12)
  - Mobility decreased [Unknown]
  - Musculoskeletal discomfort [Unknown]
  - Osteoarthritis [Unknown]
  - Suicidal ideation [Not Recovered/Not Resolved]
  - Joint injury [Unknown]
  - Diarrhoea [Not Recovered/Not Resolved]
  - Constipation [Not Recovered/Not Resolved]
  - Nausea [Not Recovered/Not Resolved]
  - Meniscus injury [Unknown]
  - Abdominal discomfort [Not Recovered/Not Resolved]
  - Dyspepsia [Not Recovered/Not Resolved]
  - Congenital knee deformity [Unknown]

NARRATIVE: CASE EVENT DATE: 2005
